FAERS Safety Report 8583635-4 (Version None)
Quarter: 2012Q3

REPORT INFORMATION
  Report Type: 
  Country: None (occurrence: None)
  Receive Date: 20120809
  Receipt Date: 20120704
  Transmission Date: 20120928
  Serious: Yes (Other)
  Sender: FDA-Public Use
  Company Number: JP-MSD-2012SP032678

PATIENT

DRUGS (25)
  1. REBETOL [Suspect]
     Indication: HEPATITIS C
     Dosage: 800 MG, QD
     Route: 048
     Dates: start: 20120214, end: 20120410
  2. TELAPREVIR [Suspect]
     Indication: TYPE 2 DIABETES MELLITUS
     Dosage: 2250 MG, QD
     Route: 048
     Dates: start: 20120214, end: 20120416
  3. GLUCOBAY [Concomitant]
     Indication: TYPE 2 DIABETES MELLITUS
     Dosage: 150 MG, QD
     Route: 048
  4. PANCREAZE [Concomitant]
     Indication: GASTRIC CANCER
     Dosage: 3 DF, QD
     Route: 048
  5. TELAPREVIR [Suspect]
     Dosage: 1500 MG, QD
     Route: 048
     Dates: start: 20120417, end: 20120505
  6. PANCREAZE [Concomitant]
     Indication: PRODUCT USED FOR UNKNOWN INDICATION
     Dosage: 3 DF, QD
     Route: 048
  7. DILTIAZEM HCL [Concomitant]
     Indication: PRINZMETAL ANGINA
     Dosage: FORMULATION: SRC
     Route: 048
  8. PEGINTERFERON ALFA-2B [Suspect]
     Indication: HEPATITIS C
     Dosage: 1.5 MICROGRAM PER KILOGRAM, QW
     Route: 058
     Dates: start: 20120214
  9. MAGNESIUM OXIDE [Concomitant]
     Indication: GASTRIC CANCER
     Dosage: TRADE NAME: UNKNOWN, FORMULATION: POR
     Route: 048
  10. LANSOPRAZOLE [Concomitant]
     Indication: PROPHYLAXIS
     Dosage: 15 MG, QD
     Route: 048
  11. ASPIRIN [Concomitant]
     Indication: ANGINA PECTORIS
     Dosage: 100 MG, QD
     Route: 048
     Dates: end: 20120101
  12. FAMOTIDINE [Concomitant]
     Indication: PROPHYLAXIS
     Dosage: 40 MG, QD
     Route: 048
     Dates: start: 20120417, end: 20120508
  13. REBETOL [Suspect]
     Dosage: 400 MG, QD
     Route: 048
     Dates: start: 20120425
  14. LAC-B [Concomitant]
     Dosage: FORMULATION: FGR
     Route: 048
  15. ISODINE [Concomitant]
     Indication: NASOPHARYNGITIS
     Dosage: FREQUENCY: SEVERAL-TIME/DAY.
     Route: 049
     Dates: start: 20120501, end: 20120507
  16. LAC-B [Concomitant]
     Indication: PROPHYLAXIS
     Dosage: FORMULATION: FGR
     Route: 048
  17. MAALOX (ALUMINUM HYDROXIDE (+) MAGNESIUM HYDROXIDE) [Concomitant]
     Indication: DYSPEPSIA
     Dosage: FORMULATION: GRA
     Route: 048
  18. LANSOPRAZOLE [Concomitant]
     Indication: GASTRITIS
     Dosage: 15 MG, QD
     Route: 048
  19. REBETOL [Suspect]
     Dosage: 600 MG, QD
     Route: 048
     Dates: start: 20120411, end: 20120424
  20. MAALOX (ALUMINUM HYDROXIDE (+) MAGNESIUM HYDROXIDE) [Concomitant]
     Indication: PROPHYLAXIS
     Dosage: FORMULATION: GRA
     Route: 048
  21. LEVOFLOXACIN [Concomitant]
     Indication: NASOPHARYNGITIS
     Dosage: 500 MG, QD
     Route: 048
     Dates: start: 20120501, end: 20120503
  22. CONFATANIN [Concomitant]
     Indication: PYREXIA
     Dosage: UNK UNK, PRN
     Route: 048
     Dates: start: 20120222
  23. JANUVIA [Concomitant]
     Indication: TYPE 2 DIABETES MELLITUS
     Dosage: 50 MG, QD
     Route: 048
  24. GLUFAST [Concomitant]
     Indication: TYPE 2 DIABETES MELLITUS
     Dosage: 30 MG, QD
     Route: 048
  25. MAGNESIUM OXIDE [Concomitant]
     Dosage: TRADE NAME: UNKNOWN, FORMULATION: POR
     Route: 048

REACTIONS (3)
  - PLATELET COUNT DECREASED [None]
  - RASH [None]
  - HAEMOGLOBIN DECREASED [None]
